FAERS Safety Report 9486965 (Version 1)
Quarter: 2013Q3

REPORT INFORMATION
  Report Type: Spontaneous
  Country: US (occurrence: None)
  Receive Date: 20130827
  Receipt Date: 20130827
  Transmission Date: 20140515
  Serious: Yes (Hospitalization, Other)
  Sender: FDA-Public Use
  Company Number: 2013P1001770

PATIENT
  Age: 74 Year
  Sex: Female
  Weight: 58.97 kg

DRUGS (8)
  1. TAMBOCOR [Suspect]
     Indication: ATRIAL FIBRILLATION
     Dates: start: 2000
  2. FLECAINIDE [Suspect]
     Indication: ATRIAL FIBRILLATION
     Route: 048
  3. AZOR [Concomitant]
  4. SYNTHROID [Concomitant]
  5. LIVALO [Concomitant]
  6. CELEBREX [Concomitant]
  7. OTHER UNSPECIFIED MEDICATIONS [Concomitant]
  8. AMIODARONE [Concomitant]

REACTIONS (9)
  - Atrial fibrillation [None]
  - Drug ineffective [None]
  - Thyroid cancer [None]
  - Colon cancer [None]
  - Enteritis [None]
  - Breast cancer [None]
  - Therapeutic response unexpected with drug substitution [None]
  - Toxicity to various agents [None]
  - Parathyroid tumour benign [None]
